FAERS Safety Report 5127106-6 (Version None)
Quarter: 2006Q4

REPORT INFORMATION
  Report Type: 
  Country: None (occurrence: None)
  Receive Date: 20061013
  Receipt Date: 20061004
  Transmission Date: 20070319
  Serious: Yes (Death)
  Sender: FDA-Public Use
  Company Number: JP-SANOFI-SYNTHELABO-A01200608458

PATIENT
  Age: 77 Year
  Sex: Male

DRUGS (3)
  1. FLUOROURACIL [Concomitant]
     Dosage: UNKNOWN DOSAGE IN BOLUS THEN UNKNOWN DOSAGE AS CONTINUOUS INFUSION ON DAY 1-2
     Route: 042
     Dates: start: 20060920, end: 20060921
  2. OXALIPLATIN [Suspect]
     Route: 042
     Dates: start: 20060920, end: 20060920
  3. LEUCOVORIN CALCIUM [Concomitant]
     Route: 042
     Dates: start: 20060920, end: 20060921

REACTIONS (1)
  - CARDIAC FAILURE [None]
